FAERS Safety Report 6887295-X (Version None)
Quarter: 2010Q3

REPORT INFORMATION
  Report Type: 
  Country: None (occurrence: None)
  Receive Date: 20100730
  Receipt Date: 20090605
  Transmission Date: 20110219
  Serious: No
  Sender: FDA-Public Use
  Company Number: A0789108A

PATIENT
  Age: 34 Year
  Sex: Female

DRUGS (1)
  1. IMITREX [Suspect]
     Indication: MIGRAINE
     Route: 048
     Dates: start: 20050101, end: 20050101

REACTIONS (1)
  - NERVOUSNESS [None]
